FAERS Safety Report 12715556 (Version 1)
Quarter: 2016Q3

REPORT INFORMATION
  Report Type: Spontaneous
  Country: GA (occurrence: GA)
  Receive Date: 20160906
  Receipt Date: 20160906
  Transmission Date: 20161109
  Serious: Yes (Death, Other)
  Sender: FDA-Public Use
  Company Number: GA-ACCORD-043768

PATIENT
  Age: 22 Year
  Sex: Female

DRUGS (1)
  1. METHYLDOPA. [Suspect]
     Active Substance: METHYLDOPA
     Indication: HYPERTENSION

REACTIONS (7)
  - Hepatitis toxic [Fatal]
  - Cholestasis [Fatal]
  - Maternal exposure during pregnancy [Unknown]
  - Haematemesis [Fatal]
  - Hepatic encephalopathy [Fatal]
  - Renal failure [Fatal]
  - Coagulopathy [Unknown]
